FAERS Safety Report 16426589 (Version 2)
Quarter: 2019Q2

REPORT INFORMATION
  Report Type: Report from Study
  Country: None (occurrence: IE)
  Receive Date: 20190613
  Receipt Date: 20190629
  Transmission Date: 20190711
  Serious: Yes (Death)
  Sender: FDA-Public Use
  Company Number: IE-ABBVIE-19K-229-2818063-00

PATIENT
  Sex: Female

DRUGS (3)
  1. HUMIRA [Suspect]
     Active Substance: ADALIMUMAB
     Indication: UVEITIS
     Route: 058
     Dates: start: 20180511
  2. HUMIRA [Suspect]
     Active Substance: ADALIMUMAB
     Indication: ERYTHEMA NODOSUM
  3. METHOTREXATE. [Suspect]
     Active Substance: METHOTREXATE
     Indication: PRODUCT USED FOR UNKNOWN INDICATION
     Route: 065

REACTIONS (7)
  - Listeriosis [Fatal]
  - Immunosuppression [Unknown]
  - Product use in unapproved indication [Unknown]
  - Malaise [Unknown]
  - Brain injury [Fatal]
  - Sepsis [Fatal]
  - Eye disorder [Unknown]
